FAERS Safety Report 5930399-6 (Version None)
Quarter: 2008Q4

REPORT INFORMATION
  Report Type: 
  Country: None (occurrence: None)
  Receive Date: 20081022
  Receipt Date: 20081015
  Transmission Date: 20090506
  Serious: Yes (Other)
  Sender: FDA-Public Use
  Company Number: CHNY2008DE03789

PATIENT

DRUGS (1)
  1. NICOTINE [Suspect]
     Dosage: TRANSDERMAL
     Route: 062

REACTIONS (5)
  - ANXIETY [None]
  - CARDIOVASCULAR DISORDER [None]
  - DYSPNOEA [None]
  - PALPITATIONS [None]
  - TREMOR [None]
